FAERS Safety Report 8186583-7 (Version None)
Quarter: 2012Q1

REPORT INFORMATION
  Report Type: 
  Country: None (occurrence: None)
  Receive Date: 20120306
  Receipt Date: 20120227
  Transmission Date: 20120608
  Serious: Yes (Death)
  Sender: FDA-Public Use
  Company Number: JP-UCBSA-052388

PATIENT
  Age: 58 Year
  Sex: Male

DRUGS (2)
  1. ZONISAMIDE [Concomitant]
     Indication: SIMPLE PARTIAL SEIZURES
     Dosage: DAILY DOSE:300MG
     Route: 048
  2. KEPPRA [Suspect]
     Indication: SIMPLE PARTIAL SEIZURES
     Route: 048
     Dates: start: 20111005, end: 20120217

REACTIONS (2)
  - CARDIO-RESPIRATORY ARREST [None]
  - LARGE INTESTINE CARCINOMA [None]
